FAERS Safety Report 13029619 (Version 6)
Quarter: 2019Q1

REPORT INFORMATION
  Report Type: Spontaneous
  Country: JP (occurrence: JP)
  Receive Date: 20161215
  Receipt Date: 20190316
  Transmission Date: 20190417
  Serious: Yes (Hospitalization)
  Sender: FDA-Public Use
  Company Number: JP-UNITED THERAPEUTICS-UNT-2015-015953

PATIENT
  Age: 23 Year
  Sex: Female
  Weight: 78.5 kg

DRUGS (8)
  1. REMODULIN [Suspect]
     Active Substance: TREPROSTINIL
     Indication: PULMONARY ARTERIAL HYPERTENSION
     Dosage: UNK
     Route: 041
     Dates: start: 20150914
  2. REMODULIN [Suspect]
     Active Substance: TREPROSTINIL
     Dosage: 0.015 ?G/KG, CONTINUING
     Route: 041
     Dates: start: 2015
  3. REMODULIN [Suspect]
     Active Substance: TREPROSTINIL
     Dosage: 0.011 ?G/KG, CONTINUING
     Route: 058
     Dates: start: 201512
  4. ADCIRCA [Concomitant]
     Active Substance: TADALAFIL
     Indication: PULMONARY ARTERIAL HYPERTENSION
     Dosage: 20 MG, QD
     Route: 048
     Dates: start: 20150413
  5. REMODULIN [Suspect]
     Active Substance: TREPROSTINIL
     Indication: PULMONARY ARTERIAL HYPERTENSION
     Dosage: UNK
     Route: 058
     Dates: start: 20151207
  6. REMODULIN [Suspect]
     Active Substance: TREPROSTINIL
     Dosage: 0.013 ?G/KG, CONTINUING
     Route: 041
     Dates: start: 2015
  7. TRACLEER [Concomitant]
     Active Substance: BOSENTAN
     Indication: PULMONARY ARTERIAL HYPERTENSION
     Dosage: 125 MG, Q12H
     Route: 048
  8. REVATIO [Concomitant]
     Active Substance: SILDENAFIL CITRATE
     Indication: PULMONARY ARTERIAL HYPERTENSION
     Dosage: 20 MG, Q8H
     Route: 048

REACTIONS (12)
  - Infusion site discharge [Unknown]
  - Dermatitis infected [Recovering/Resolving]
  - Infusion site discolouration [Unknown]
  - Device related infection [Recovered/Resolved]
  - Infusion site rash [Recovering/Resolving]
  - Infusion site erythema [Recovering/Resolving]
  - Infusion site induration [Unknown]
  - Infusion site pruritus [Unknown]
  - Catheter site infection [Unknown]
  - Device related sepsis [Recovered/Resolved]
  - Infusion site pain [Recovering/Resolving]
  - Infusion site hypersensitivity [Recovering/Resolving]

NARRATIVE: CASE EVENT DATE: 20151105
